FAERS Safety Report 20995972 (Version 1)
Quarter: 2022Q2

REPORT INFORMATION
  Report Type: Spontaneous
  Country: US (occurrence: US)
  Receive Date: 20220623
  Receipt Date: 20220623
  Transmission Date: 20220721
  Serious: No
  Sender: FDA-Public Use
  Company Number: US-Accord-256638

PATIENT
  Sex: Female

DRUGS (1)
  1. CLONAZEPAM [Suspect]
     Active Substance: CLONAZEPAM
     Indication: Anxiety
     Dosage: TWICE A DAY THEN HALF OF CLONAZEPAM IN HALF AGAIN

REACTIONS (7)
  - Nervousness [Unknown]
  - Mood swings [Unknown]
  - Somnolence [Unknown]
  - Dizziness [Unknown]
  - Gait disturbance [Unknown]
  - Abdominal discomfort [Unknown]
  - Wrong technique in product usage process [Unknown]
